FAERS Safety Report 14911080 (Version 1)
Quarter: 2018Q2

REPORT INFORMATION
  Report Type: Spontaneous
  Country: US (occurrence: US)
  Receive Date: 20180518
  Receipt Date: 20180518
  Transmission Date: 20180711
  Serious: No
  Sender: FDA-Public Use
  Company Number: US-SHIRE-US201818762

PATIENT
  Sex: Female
  Weight: 108.84 kg

DRUGS (1)
  1. XIIDRA [Suspect]
     Active Substance: LIFITEGRAST
     Indication: DRY EYE
     Dosage: 1 GTT, 2X/DAY:BID
     Route: 047
     Dates: start: 201804

REACTIONS (4)
  - Ill-defined disorder [Unknown]
  - Unevaluable event [Recovered/Resolved]
  - Eye disorder [Recovered/Resolved]
  - Instillation site pruritus [Recovered/Resolved]

NARRATIVE: CASE EVENT DATE: 2018
